FAERS Safety Report 14492987 (Version 1)
Quarter: 2018Q1

REPORT INFORMATION
  Report Type: Spontaneous
  Country: US (occurrence: US)
  Receive Date: 20180205
  Receipt Date: 20180205
  Transmission Date: 20180509
  Serious: Yes (Hospitalization)
  Sender: FDA-Public Use
  Company Number: None

PATIENT
  Sex: Male

DRUGS (9)
  1. REBIF [Suspect]
     Active Substance: INTERFERON BETA-1A
     Indication: MULTIPLE SCLEROSIS
     Dosage: ?          OTHER FREQUENCY:3 TIMES A WEEK;?
     Route: 058
     Dates: start: 20141121
  2. ASPIRIN. [Concomitant]
     Active Substance: ASPIRIN
  3. NAPROXEN. [Concomitant]
     Active Substance: NAPROXEN
  4. VIAGRA [Concomitant]
     Active Substance: SILDENAFIL CITRATE
  5. MYRBETRIQ [Concomitant]
     Active Substance: MIRABEGRON
  6. VITAMIN D3 [Concomitant]
     Active Substance: CHOLECALCIFEROL
  7. MULTIVITE [Concomitant]
     Active Substance: VITAMINS
  8. PROBIOTIC [Concomitant]
     Active Substance: PROBIOTICS NOS
  9. WELLBUTRIN [Concomitant]
     Active Substance: BUPROPION HYDROCHLORIDE

REACTIONS (1)
  - Mobility decreased [None]
